FAERS Safety Report 8859212 (Version 1)
Quarter: 2012Q4

REPORT INFORMATION
  Report Type: Spontaneous
  Country: US (occurrence: None)
  Receive Date: 20121024
  Receipt Date: 20121024
  Transmission Date: 20130627
  Serious: No
  Sender: FDA-Public Use
  Company Number: None

PATIENT
  Age: 5 Year
  Sex: Female
  Weight: 23.6 kg

DRUGS (2)
  1. EQUATE ACETAMINOPHEN [Suspect]
     Route: 048
  2. IBUPROFEN [Suspect]

REACTIONS (4)
  - Vomiting [None]
  - Wrong drug administered [None]
  - Product label on wrong product [None]
  - Drug dispensing error [None]
